FAERS Safety Report 22594373 (Version 1)
Quarter: 2023Q2

REPORT INFORMATION
  Report Type: Report from Study
  Country: PK (occurrence: PK)
  Receive Date: 20230613
  Receipt Date: 20230613
  Transmission Date: 20230722
  Serious: Yes (Death, Hospitalization)
  Sender: FDA-Public Use
  Company Number: PK-002147023-NVSC2023PK134530

PATIENT
  Age: 46 Year
  Sex: Female
  Weight: 81 kg

DRUGS (2)
  1. KISQALI [Suspect]
     Active Substance: RIBOCICLIB
     Indication: Breast cancer
     Dosage: 600 MG, QD
     Route: 065
     Dates: start: 20221122, end: 20230508
  2. KISQALI [Suspect]
     Active Substance: RIBOCICLIB
     Indication: Breast cancer metastatic

REACTIONS (2)
  - Anaemia [Fatal]
  - Decreased appetite [Fatal]

NARRATIVE: CASE EVENT DATE: 20230602
